FAERS Safety Report 5305090-X (Version None)
Quarter: 2007Q2

REPORT INFORMATION
  Report Type: 
  Country: None (occurrence: None)
  Receive Date: 20070417
  Receipt Date: 20070406
  Transmission Date: 20071010
  Serious: Yes (Hospitalization)
  Sender: FDA-Public Use
  Company Number: 163-21880-07040582

PATIENT
  Age: 72 Year
  Sex: Female

DRUGS (1)
  1. REVLIMID [Suspect]
     Indication: MULTIPLE MYELOMA
     Dosage: 25 MG, DAILY FOR 21 DAYS, ORAL
     Route: 048
     Dates: start: 20061204

REACTIONS (6)
  - ASTHMA [None]
  - CONSTIPATION [None]
  - GASTROENTERITIS VIRAL [None]
  - OESOPHAGEAL CANDIDIASIS [None]
  - OESOPHAGEAL INFECTION [None]
  - PULMONARY FUNCTION TEST DECREASED [None]
